FAERS Safety Report 9970160 (Version 1)
Quarter: 2014Q1

REPORT INFORMATION
  Report Type: Spontaneous
  Country: DE (occurrence: None)
  Receive Date: 20140304
  Receipt Date: 20140304
  Transmission Date: 20141002
  Serious: Yes (Congenital Anomaly)
  Sender: FDA-Public Use
  Company Number: VAL_03006_2014

PATIENT
  Age: 1 Day
  Sex: Male
  Weight: 4 kg

DRUGS (6)
  1. METOPROLOL [Suspect]
     Indication: MATERNAL EXPOSURE DURING PREGNANCY
     Dosage: MATERNAL DOSE: 50 {MG/D} , GW 5+2 - 25
     Route: 064
  2. BISOPROLOL [Concomitant]
  3. INSULIN [Concomitant]
  4. FOLIO [Concomitant]
  5. DOPEGYT [Concomitant]
  6. ASS [Concomitant]

REACTIONS (5)
  - Maternal drugs affecting foetus [None]
  - Congenital hydronephrosis [None]
  - Ureteric stenosis [None]
  - Caesarean section [None]
  - Renal impairment [None]
